FAERS Safety Report 18868391 (Version 1)
Quarter: 2021Q1

REPORT INFORMATION
  Report Type: Spontaneous
  Country: RO (occurrence: RO)
  Receive Date: 20210209
  Receipt Date: 20210209
  Transmission Date: 20210420
  Serious: Yes (Hospitalization)
  Sender: FDA-Public Use
  Company Number: RO-PFIZER INC-2021095339

PATIENT
  Age: 42 Year
  Sex: Female

DRUGS (7)
  1. IMURAN [Concomitant]
     Active Substance: AZATHIOPRINE
     Dosage: 150 MG, DAILY
  2. PREDNISONE. [Concomitant]
     Active Substance: PREDNISONE
     Dosage: 100 MG, DAILY(FOR 3 WEEKS)
     Dates: start: 201801
  3. MEDROL [Suspect]
     Active Substance: METHYLPREDNISOLONE
     Dosage: 8 MG, DAILY
     Dates: start: 2018
  4. MEDROL [Suspect]
     Active Substance: METHYLPREDNISOLONE
     Dosage: 32 MG, DAILY
  5. MEDROL [Suspect]
     Active Substance: METHYLPREDNISOLONE
     Dosage: 64 MG, DAILY(GRADUALLY DECREASING THE DOSE)
     Dates: start: 201801
  6. ENDOXAN [CYCLOPHOSPHAMIDE] [Concomitant]
     Active Substance: CYCLOPHOSPHAMIDE
     Dosage: 100 MG, DAILY
  7. ENDOXAN [CYCLOPHOSPHAMIDE] [Concomitant]
     Active Substance: CYCLOPHOSPHAMIDE
     Dosage: 150 MG, DAILY

REACTIONS (8)
  - Dermatitis bullous [Unknown]
  - Blister [Unknown]
  - Anaemia [Unknown]
  - Inflammation [Unknown]
  - Drug ineffective [Unknown]
  - Infection [Unknown]
  - Cushingoid [Unknown]
  - Skin erosion [Unknown]
